FAERS Safety Report 14076961 (Version 1)
Quarter: 2017Q4

REPORT INFORMATION
  Report Type: Report from Study
  Country: None (occurrence: BR)
  Receive Date: 20171011
  Receipt Date: 20171011
  Transmission Date: 20180321
  Serious: Yes (Other)
  Sender: FDA-Public Use
  Company Number: BR-ABBVIE-17P-020-1875625-00

PATIENT
  Sex: Female
  Weight: 76 kg

DRUGS (4)
  1. DUPHASTON [Concomitant]
     Active Substance: DYDROGESTERONE
     Indication: ABORTION SPONTANEOUS
     Dosage: ^1^ EVERY 12 HOURS
  2. FERROUS SULFATE. [Concomitant]
     Active Substance: FERROUS SULFATE
     Indication: SUPPLEMENTATION THERAPY
     Dosage: ^1^ PER DAY
     Dates: start: 2016
  3. SYNTHROID [Suspect]
     Active Substance: LEVOTHYROXINE SODIUM
     Indication: HYPOTHYROIDISM
     Route: 048
     Dates: start: 201610
  4. FOLIC ACID. [Concomitant]
     Active Substance: FOLIC ACID
     Indication: SUPPLEMENTATION THERAPY
     Dosage: ^1^ PER DAY
     Dates: start: 2016, end: 201702

REACTIONS (12)
  - Breech presentation [Unknown]
  - Cardiac disorder [Recovered/Resolved]
  - Palpitations [Recovered/Resolved]
  - Maternal exposure during pregnancy [Unknown]
  - Dizziness [Recovered/Resolved]
  - Drug dose omission [Recovered/Resolved]
  - Vaginal haemorrhage [Recovered/Resolved]
  - Vaginal discharge [Recovered/Resolved]
  - Nausea [Recovered/Resolved]
  - Normal newborn [Recovered/Resolved]
  - Exposure during breast feeding [Unknown]
  - Vomiting [Recovered/Resolved]

NARRATIVE: CASE EVENT DATE: 2016
